FAERS Safety Report 6103132-5 (Version None)
Quarter: 2009Q1

REPORT INFORMATION
  Report Type: 
  Country: None (occurrence: None)
  Receive Date: 20090305
  Receipt Date: 20090227
  Transmission Date: 20090719
  Serious: Yes (Hospitalization)
  Sender: FDA-Public Use
  Company Number: US-CELGENEUS-163-C5013-08050240

PATIENT
  Sex: Female
  Weight: 53.3 kg

DRUGS (6)
  1. CC-5013 [Suspect]
     Route: 048
     Dates: start: 20080429
  2. ALLOPURINOL [Concomitant]
     Indication: PROPHYLAXIS
     Route: 048
  3. BACTRIM [Concomitant]
     Indication: INFECTION PROPHYLAXIS
     Route: 048
  4. CARTIA XT [Concomitant]
     Indication: TACHYARRHYTHMIA
     Route: 048
  5. NEXIUM [Concomitant]
     Route: 048
  6. TESSALON [Concomitant]
     Indication: COUGH
     Route: 048

REACTIONS (4)
  - BACK PAIN [None]
  - NAUSEA [None]
  - TUMOUR FLARE [None]
  - VOMITING [None]
